FAERS Safety Report 4965808-2 (Version None)
Quarter: 2006Q2

REPORT INFORMATION
  Report Type: 
  Country: None (occurrence: None)
  Receive Date: 20060406
  Receipt Date: 20060406
  Transmission Date: 20061013
  Serious: No
  Sender: FDA-Public Use
  Company Number: None

PATIENT
  Sex: Male
  Weight: 132.9039 kg

DRUGS (1)
  1. METYRAPONE 2.5 GM [Suspect]
     Indication: ADRENAL INSUFFICIENCY
     Dosage: 3.5 GM ONCE 3/28@0:00 PO [1 DOSE]
     Route: 048
     Dates: start: 20060328

REACTIONS (3)
  - DYSKINESIA [None]
  - HYPERHIDROSIS [None]
  - PAIN [None]
